FAERS Safety Report 9462138 (Version 1)
Quarter: 2013Q3

REPORT INFORMATION
  Report Type: Spontaneous
  Country: US (occurrence: None)
  Receive Date: 20130815
  Receipt Date: 20130815
  Transmission Date: 20140515
  Serious: Yes (Hospitalization)
  Sender: FDA-Public Use
  Company Number: None

PATIENT
  Age: 83 None
  Sex: Female
  Weight: 63.7 kg

DRUGS (11)
  1. DILANTIN [Suspect]
     Indication: EPILEPSY
     Dosage: 100MG  QAM  PO?CHRONIC WITH RECENT INCREASE
     Route: 048
  2. ASA [Concomitant]
  3. VYTORIN [Concomitant]
  4. HYZAAR [Concomitant]
  5. CELEXA [Concomitant]
  6. LEVOTHYROXINE [Concomitant]
  7. METOPROLOL [Concomitant]
  8. TYLENOL [Concomitant]
  9. KEFLEX [Concomitant]
  10. TRAMADOL [Concomitant]
  11. OXYCODONE [Concomitant]

REACTIONS (7)
  - Fall [None]
  - Toxicity to various agents [None]
  - Ataxia [None]
  - Asthenia [None]
  - Hypotension [None]
  - Mental status changes [None]
  - Drug level above therapeutic [None]
